FAERS Safety Report 12065761 (Version 2)
Quarter: 2016Q1

REPORT INFORMATION
  Report Type: Spontaneous
  Country: US (occurrence: US)
  Receive Date: 20160211
  Receipt Date: 20160308
  Transmission Date: 20160526
  Serious: No
  Sender: FDA-Public Use
  Company Number: US-PFIZER INC-2016040931

PATIENT
  Age: 46 Year
  Sex: Male
  Weight: 122 kg

DRUGS (1)
  1. ADVIL [Suspect]
     Active Substance: IBUPROFEN
     Indication: ARTHRALGIA
     Dosage: 2 CAPULES, SINGLE
     Dates: start: 20160123, end: 20160123

REACTIONS (6)
  - Product physical issue [Unknown]
  - Nausea [Unknown]
  - Product taste abnormal [Unknown]
  - Poor quality drug administered [Unknown]
  - Malaise [Unknown]
  - Dysgeusia [Unknown]

NARRATIVE: CASE EVENT DATE: 20160123
